FAERS Safety Report 7775829-2 (Version None)
Quarter: 2011Q3

REPORT INFORMATION
  Report Type: 
  Country: None (occurrence: None)
  Receive Date: 20110923
  Receipt Date: 20110919
  Transmission Date: 20111222
  Serious: Yes (Other)
  Sender: FDA-Public Use
  Company Number: PHEH2011US04448

PATIENT
  Sex: Female

DRUGS (19)
  1. NIACIN [Concomitant]
  2. GLUCOSAMINE [Concomitant]
  3. NIACIN [Concomitant]
  4. LIPITOR [Suspect]
     Indication: BLOOD CHOLESTEROL INCREASED
  5. ZITHROMAX [Suspect]
  6. CALCIUM CARBONATE [Concomitant]
  7. MAGNESIUM [Concomitant]
  8. CHONDROITIN [Concomitant]
  9. FORTEO [Suspect]
     Indication: OSTEOPOROSIS
  10. VITAMIN D [Concomitant]
  11. PRILOSEC [Concomitant]
     Indication: GASTROOESOPHAGEAL REFLUX DISEASE
  12. FOSAMAX [Suspect]
     Indication: OSTEOPOROSIS
  13. BACTRIM [Suspect]
  14. BONIVA [Suspect]
     Indication: OSTEOPOROSIS
  15. CIPROFLOXACIN [Suspect]
  16. ASPIRIN [Concomitant]
  17. RECLAST [Suspect]
     Indication: OSTEOPOROSIS
     Dosage: UNK
     Route: 042
  18. CRESTOR [Suspect]
     Indication: BLOOD CHOLESTEROL INCREASED
  19. FISH OIL [Concomitant]

REACTIONS (13)
  - PARATHYROID DISORDER [None]
  - EAR DISCOMFORT [None]
  - FEELING ABNORMAL [None]
  - BLOOD CALCIUM INCREASED [None]
  - FLUSHING [None]
  - MYALGIA [None]
  - FATIGUE [None]
  - DIARRHOEA [None]
  - ERYTHEMA [None]
  - MUSCLE SPASMS [None]
  - ODYNOPHAGIA [None]
  - PAIN IN EXTREMITY [None]
  - INSOMNIA [None]
